FAERS Safety Report 5677806-4 (Version None)
Quarter: 2008Q1

REPORT INFORMATION
  Report Type: 
  Country: None (occurrence: None)
  Receive Date: 20080318
  Receipt Date: 20080306
  Transmission Date: 20080703
  Serious: Yes (Hospitalization)
  Sender: FDA-Public Use
  Company Number: 2007-04082

PATIENT
  Sex: Male

DRUGS (1)
  1. VELCADE [Suspect]
     Indication: DRUG USE FOR UNKNOWN INDICATION
     Dates: start: 20071119, end: 20071217

REACTIONS (4)
  - DIARRHOEA [None]
  - NEUTROPENIC SEPSIS [None]
  - ORAL INTAKE REDUCED [None]
  - THROMBOCYTOPENIA [None]
